FAERS Safety Report 4393788-X (Version None)
Quarter: 2004Q3

REPORT INFORMATION
  Report Type: 
  Country: None (occurrence: None)
  Receive Date: 20040706
  Receipt Date: 20040525
  Transmission Date: 20050211
  Serious: Yes (Other)
  Sender: FDA-Public Use
  Company Number: 2004-DE-03030GD

PATIENT
  Age: 52 Year
  Sex: Female

DRUGS (2)
  1. MEXILETINE HYDROCHLORIDE [Suspect]
     Indication: PHANTOM PAIN
     Dosage: PO
     Route: 048
  2. DIPYRONE TAB [Suspect]
     Indication: PHANTOM PAIN
     Dosage: PO
     Route: 048

REACTIONS (2)
  - PHANTOM PAIN [None]
  - THERAPY NON-RESPONDER [None]
